FAERS Safety Report 23968621 (Version 1)
Quarter: 2024Q2

REPORT INFORMATION
  Report Type: Spontaneous
  Country: DK (occurrence: DK)
  Receive Date: 20240612
  Receipt Date: 20240612
  Transmission Date: 20240716
  Serious: Yes (Other)
  Sender: FDA-Public Use
  Company Number: None

PATIENT
  Age: 4 Decade
  Sex: Female

DRUGS (5)
  1. SULFASALAZINE [Suspect]
     Active Substance: SULFASALAZINE
     Indication: Arthritis reactive
     Dosage: 500 MG, 2X/DAY
     Route: 048
     Dates: start: 2022
  2. SULFASALAZINE [Suspect]
     Active Substance: SULFASALAZINE
     Indication: Arthritis reactive
  3. PROTOPIC [Concomitant]
     Active Substance: TACROLIMUS
     Indication: Eczema
     Dosage: UNK
     Dates: start: 20240116
  4. HYDROCORTISONE\MICONAZOLE NITRATE [Concomitant]
     Active Substance: HYDROCORTISONE\MICONAZOLE NITRATE
     Indication: Eczema infected
     Dosage: UNK
     Dates: start: 20240308
  5. DROSPIRENONE [Concomitant]
     Active Substance: DROSPIRENONE
     Dosage: UNK
     Dates: start: 20230426

REACTIONS (1)
  - Haemolysis [Not Recovered/Not Resolved]

NARRATIVE: CASE EVENT DATE: 20240101
